FAERS Safety Report 26113538 (Version 2)
Quarter: 2025Q4

REPORT INFORMATION
  Report Type: Spontaneous
  Country: US (occurrence: US)
  Receive Date: 20251202
  Receipt Date: 20251204
  Transmission Date: 20260118
  Serious: Yes (Disabling, Other)
  Sender: PFIZER
  Company Number: US-PFIZER INC-PV202500138688

PATIENT
  Age: 67 Year
  Sex: Male
  Weight: 80.726 kg

DRUGS (5)
  1. METOCLOPRAMIDE HYDROCHLORIDE [Suspect]
     Active Substance: METOCLOPRAMIDE HYDROCHLORIDE
     Indication: Nausea
     Dosage: UNK, AS NEEDED
  2. CALCIUM CARBONATE [Concomitant]
     Active Substance: CALCIUM CARBONATE
     Indication: Dyspepsia
     Dosage: UNK
  3. CARBIDOPA\LEVODOPA [Concomitant]
     Active Substance: CARBIDOPA\LEVODOPA
     Indication: Parkinson^s disease
     Dosage: FREQ:8 H;CARBIDOPA/LEVODOPA 25 MG/100 MG, ONE TABLET THREE TIMES DAILY
     Route: 048
  4. CARBIDOPA\LEVODOPA [Concomitant]
     Active Substance: CARBIDOPA\LEVODOPA
     Dosage: FREQ:4.8 H;ONE TABLET THREE TIMES DAILY, OVER TIME,THIS WAS INCREASED TO ONE TABLET FIVE TIMES DAILY
     Route: 048
  5. GABAPENTIN [Concomitant]
     Active Substance: GABAPENTIN
     Indication: Restless legs syndrome
     Dosage: 2 DF, 3X/DAY
     Route: 048

REACTIONS (1)
  - Parkinson^s disease [Recovering/Resolving]
